FAERS Safety Report 12884842 (Version 1)
Quarter: 2016Q4

REPORT INFORMATION
  Report Type: Spontaneous
  Country: US (occurrence: US)
  Receive Date: 20161026
  Receipt Date: 20161026
  Transmission Date: 20170207
  Serious: Yes (Hospitalization, Other)
  Sender: FDA-Public Use
  Company Number: US-JNJFOC-20161015451

PATIENT
  Age: 25 Year
  Sex: Male

DRUGS (2)
  1. APAP [Suspect]
     Active Substance: ACETAMINOPHEN
     Indication: PRODUCT USED FOR UNKNOWN INDICATION
     Route: 048
     Dates: start: 20161014
  2. APAP [Suspect]
     Active Substance: ACETAMINOPHEN
     Route: 048

REACTIONS (4)
  - Suicide attempt [Unknown]
  - Transaminases increased [Unknown]
  - Intentional overdose [Unknown]
  - Amnesia [Unknown]

NARRATIVE: CASE EVENT DATE: 201610
